FAERS Safety Report 11228014 (Version 1)
Quarter: 2015Q2

REPORT INFORMATION
  Report Type: Spontaneous
  Country: BE (occurrence: None)
  Receive Date: 20150626
  Receipt Date: 20150626
  Transmission Date: 20150821
  Serious: Yes (Death, Hospitalization, Other)
  Sender: FDA-Public Use
  Company Number: BE2015GSK089973

PATIENT
  Age: 44 Year
  Sex: Male

DRUGS (4)
  1. ZIDOVUDINE (ZIDOVUDINE) [Suspect]
     Active Substance: ZIDOVUDINE
     Indication: HIV INFECTION
  2. ABACAVIR (ABACAVIR) [Suspect]
     Active Substance: ABACAVIR
  3. LAMIVUDINE (LAMIVUDINE) [Suspect]
     Active Substance: LAMIVUDINE
     Indication: HIV INFECTION
  4. SAQUINAVIR (SAQUINAVIR) [Suspect]
     Active Substance: SAQUINAVIR
     Indication: HIV INFECTION

REACTIONS (18)
  - Central nervous system lesion [None]
  - Mycobacterium test positive [None]
  - Necrosis [None]
  - Fatigue [None]
  - Bacterial test positive [None]
  - Pyrexia [None]
  - Abscess [None]
  - Immune reconstitution inflammatory syndrome [None]
  - Brain oedema [None]
  - Bronchopulmonary aspergillosis [None]
  - Mycobacterium avium complex infection [None]
  - Dyspnoea [None]
  - Cytomegalovirus infection [None]
  - Decreased appetite [None]
  - Pulmonary oedema [None]
  - Progressive multifocal leukoencephalopathy [None]
  - Bronchopneumonia [None]
  - Infection [None]
